FAERS Safety Report 5413554-3 (Version None)
Quarter: 2007Q3

REPORT INFORMATION
  Report Type: 
  Country: None (occurrence: None)
  Receive Date: 20070814
  Receipt Date: 20070802
  Transmission Date: 20080115
  Serious: Yes (Life-Threatening, Hospitalization, Other)
  Sender: FDA-Public Use
  Company Number: US-AVENTIS-200711919US

PATIENT
  Sex: Female
  Weight: 78 kg

DRUGS (12)
  1. KETEK [Suspect]
     Indication: PNEUMONIA
     Dosage: DOSE: 300/2 TABLETS
     Route: 048
     Dates: start: 20070302
  2. KETEK [Suspect]
     Dosage: DOSE: 400/2 TABLETS
     Route: 048
     Dates: start: 20061130, end: 20061209
  3. NEURONTIN [Concomitant]
     Dosage: DOSE: #1
     Route: 048
     Dates: start: 20061130
  4. EFFEXOR [Concomitant]
     Route: 048
     Dates: start: 20061219, end: 20070302
  5. EFFEXOR [Concomitant]
     Route: 048
  6. CYMBALTA [Concomitant]
  7. PREMARIN [Concomitant]
     Route: 048
  8. ULTRAM [Concomitant]
     Dosage: DOSE: 50/#1-2
     Route: 048
  9. NAPROXEN SODIUM [Concomitant]
     Route: 048
     Dates: start: 20070302, end: 20070402
  10. GUIADRINE GP [Concomitant]
     Dosage: DOSE: 1200-120/1/2 TAB
     Route: 048
     Dates: start: 20070302, end: 20070313
  11. ALBUTEROL SULFATE HFA [Concomitant]
     Dates: start: 20061130, end: 20070130
  12. ADVAIR DISKUS 100/50 [Concomitant]
     Dosage: DOSE: 100-50
     Route: 048
     Dates: start: 20061130, end: 20070302

REACTIONS (23)
  - ABDOMINAL PAIN [None]
  - ALANINE AMINOTRANSFERASE INCREASED [None]
  - ASPARTATE AMINOTRANSFERASE INCREASED [None]
  - BLOOD ALKALINE PHOSPHATASE INCREASED [None]
  - BLOOD BILIRUBIN INCREASED [None]
  - BLOOD CREATINE PHOSPHOKINASE INCREASED [None]
  - BLOOD UREA INCREASED [None]
  - C-REACTIVE PROTEIN INCREASED [None]
  - COUGH [None]
  - DYSPNOEA [None]
  - FATIGUE [None]
  - HEPATIC FAILURE [None]
  - HEPATITIS [None]
  - LIPASE INCREASED [None]
  - NAUSEA [None]
  - PAIN [None]
  - PYREXIA [None]
  - RENAL FAILURE [None]
  - SINUS TACHYCARDIA [None]
  - STOMACH DISCOMFORT [None]
  - THROMBOSIS [None]
  - VOMITING [None]
  - WHITE BLOOD CELL COUNT INCREASED [None]
